FAERS Safety Report 8131330-8 (Version None)
Quarter: 2012Q1

REPORT INFORMATION
  Report Type: 
  Country: None (occurrence: None)
  Receive Date: 20120210
  Receipt Date: 20120210
  Transmission Date: 20120608
  Serious: Yes (Hospitalization)
  Sender: FDA-Public Use
  Company Number: None

PATIENT
  Age: 66 Year
  Sex: Male
  Weight: 84.9 kg

DRUGS (1)
  1. PHENYTOIN [Suspect]
     Indication: CONVULSION
     Dosage: 400 MG AT BEDTIME PO
     Route: 048
     Dates: start: 20100507, end: 20100513

REACTIONS (5)
  - TOXICITY TO VARIOUS AGENTS [None]
  - CHILLS [None]
  - CONVULSION [None]
  - SEDATION [None]
  - COUGH [None]
